FAERS Safety Report 6923984-6 (Version None)
Quarter: 2010Q3

REPORT INFORMATION
  Report Type: 
  Country: None (occurrence: None)
  Receive Date: 20100813
  Receipt Date: 20100804
  Transmission Date: 20110219
  Serious: Yes (Other)
  Sender: FDA-Public Use
  Company Number: US-ELI_LILLY_AND_COMPANY-US201008002022

PATIENT
  Sex: Female

DRUGS (8)
  1. CYMBALTA [Suspect]
     Indication: DEPRESSION
     Dosage: 30 MG, DAILY (1/D)
  2. CYMBALTA [Suspect]
     Dosage: 30 MG, DAILY (1/D)
     Dates: start: 20100726
  3. TYLENOL PM [Concomitant]
  4. XANAX [Concomitant]
  5. VITAMIN B-12 [Concomitant]
     Dosage: UNK, MONTHLY (1/M)
  6. FIORICET [Concomitant]
     Indication: MIGRAINE
  7. CRESTOR [Concomitant]
     Dosage: 5 MG, UNK
  8. BUSPAR [Concomitant]
     Dosage: 10 MG, 3/D

REACTIONS (4)
  - ABDOMINAL HERNIA REPAIR [None]
  - CLOSTRIDIAL INFECTION [None]
  - NAUSEA [None]
  - OFF LABEL USE [None]
